FAERS Safety Report 23682441 (Version 2)
Quarter: 2024Q4

REPORT INFORMATION
  Report Type: Spontaneous
  Country: CR (occurrence: CR)
  Receive Date: 20240328
  Receipt Date: 20241101
  Transmission Date: 20250114
  Serious: Yes (Other)
  Sender: PFIZER
  Company Number: CR-PFIZER INC-202300153675

PATIENT
  Age: 59 Year
  Sex: Female

DRUGS (8)
  1. SUTENT [Suspect]
     Active Substance: SUNITINIB MALATE
     Indication: Renal cancer
     Dosage: EVERY DAY FOR 2 WEEKS AND THEN REST
     Route: 048
     Dates: start: 202104
  2. SUTENT [Suspect]
     Active Substance: SUNITINIB MALATE
     Dosage: 2/1 WEEK SHEDULE
     Dates: start: 20220517
  3. SUTENT [Suspect]
     Active Substance: SUNITINIB MALATE
     Dosage: DAYS IN A ROW AND STOPS (DOES NOT KNOW THE REST TIME)
     Dates: start: 2023
  4. SUTENT [Suspect]
     Active Substance: SUNITINIB MALATE
     Indication: Renal cancer
     Dosage: 37 MG, DAILY (ONE DOSE OF 25 MG AND ONE DOSE OF 12.5 FOR A TOTAL OF 37.5 MG DAILY)
  5. OMEPRAZOLE [Concomitant]
     Active Substance: OMEPRAZOLE
     Dosage: UNK
  6. IRBESARTAN [Concomitant]
     Active Substance: IRBESARTAN
     Dosage: UNK
  7. AMLODIPINE [Concomitant]
     Active Substance: AMLODIPINE BESYLATE
     Dosage: UNK
  8. HYDROCHLOROTHIAZIDE [Concomitant]
     Active Substance: HYDROCHLOROTHIAZIDE
     Dosage: UNK

REACTIONS (32)
  - Colitis [Recovering/Resolving]
  - Hypothyroidism [Not Recovered/Not Resolved]
  - Hypertension [Not Recovered/Not Resolved]
  - Gastrooesophageal reflux disease [Not Recovered/Not Resolved]
  - Abdominal pain upper [Not Recovered/Not Resolved]
  - Gastritis [Recovering/Resolving]
  - Skin lesion [Recovering/Resolving]
  - Diarrhoea [Recovering/Resolving]
  - Constipation [Recovering/Resolving]
  - Headache [Not Recovered/Not Resolved]
  - Food intolerance [Not Recovered/Not Resolved]
  - Stomatitis [Not Recovered/Not Resolved]
  - Dizziness [Unknown]
  - Dysuria [Not Recovered/Not Resolved]
  - Dyschezia [Not Recovered/Not Resolved]
  - Vaginal haemorrhage [Recovered/Resolved]
  - Blood sodium decreased [Unknown]
  - Feeling abnormal [Unknown]
  - Memory impairment [Unknown]
  - Weight decreased [Unknown]
  - Vomiting [Unknown]
  - Nausea [Unknown]
  - Urinary tract infection [Unknown]
  - Skin disorder [Not Recovered/Not Resolved]
  - Tooth injury [Not Recovered/Not Resolved]
  - Tooth deposit [Not Recovered/Not Resolved]
  - Hair texture abnormal [Not Recovered/Not Resolved]
  - Skin depigmentation [Not Recovered/Not Resolved]
  - Hair colour changes [Not Recovered/Not Resolved]
  - Neoplasm progression [Unknown]
  - Intentional product misuse [Unknown]
  - Product dispensing error [Unknown]

NARRATIVE: CASE EVENT DATE: 20210401
